FAERS Safety Report 21650692 (Version 1)
Quarter: 2022Q4

REPORT INFORMATION
  Report Type: Spontaneous
  Country: US (occurrence: US)
  Receive Date: 20221128
  Receipt Date: 20221128
  Transmission Date: 20230113
  Serious: No
  Sender: FDA-Public Use
  Company Number: US-PFIZER INC-202201323266

PATIENT
  Age: 65 Year
  Sex: Female
  Weight: 64.853 kg

DRUGS (1)
  1. CYTOMEL [Suspect]
     Active Substance: LIOTHYRONINE SODIUM
     Dosage: UNK
     Dates: start: 2020

REACTIONS (1)
  - Therapeutic product effect incomplete [Unknown]
